FAERS Safety Report 13967982 (Version 1)
Quarter: 2017Q3

REPORT INFORMATION
  Report Type: Spontaneous
  Country: SE (occurrence: CA)
  Receive Date: 20170914
  Receipt Date: 20170914
  Transmission Date: 20171128
  Serious: Yes (Death, Other)
  Sender: FDA-Public Use
  Company Number: SE-APOTEX-2017AP017995

PATIENT
  Sex: Male

DRUGS (3)
  1. CALCIUM WITH VITAMIN D3            /00944201/ [Concomitant]
     Indication: OSTEOGENESIS IMPERFECTA
     Dosage: UNK
     Route: 065
  2. ZOLEDRONIC ACID CONCENTRATE [Suspect]
     Active Substance: ZOLEDRONIC ACID
     Dosage: 0.025 MG/KG, AT 12 WEEKS OF LIFE
     Route: 065
  3. ZOLEDRONIC ACID CONCENTRATE [Suspect]
     Active Substance: ZOLEDRONIC ACID
     Indication: OSTEOGENESIS IMPERFECTA
     Dosage: 0.012 MG/KG, AT DAY 6 OF LIFE
     Route: 065

REACTIONS (1)
  - Drug ineffective [Fatal]
